FAERS Safety Report 16163492 (Version 5)
Quarter: 2019Q2

REPORT INFORMATION
  Report Type: Spontaneous
  Country: CA (occurrence: CA)
  Receive Date: 20190405
  Receipt Date: 20190423
  Transmission Date: 20190711
  Serious: Yes (Life-Threatening, Hospitalization, Other)
  Sender: FDA-Public Use
  Company Number: CA-PFIZER INC-2019146789

PATIENT
  Age: 60 Year
  Sex: Male
  Weight: 60 kg

DRUGS (42)
  1. FLORINEF ACETATE [Suspect]
     Active Substance: FLUDROCORTISONE ACETATE
     Dosage: 0.1 MG, ONCE DAILY
     Route: 065
  2. MIDODRINE HYDROCHLORIDE. [Suspect]
     Active Substance: MIDODRINE HYDROCHLORIDE
     Dosage: 5 MG, ONCE DAILY
     Route: 065
  3. ASPIRIN [ACETYLSALICYLIC ACID] [Suspect]
     Active Substance: ASPIRIN
     Dosage: 81 MG, ONCE DAILY
     Route: 065
  4. VITAMIN D3 [Suspect]
     Active Substance: CHOLECALCIFEROL
     Dosage: 1000 IU, 1X/DAY
     Route: 065
  5. LENALIDOMIDE [Suspect]
     Active Substance: LENALIDOMIDE
     Indication: PLASMA CELL MYELOMA
     Dosage: UNK, CYCLIC
     Route: 048
  6. LEVOTHYROXINE. [Suspect]
     Active Substance: LEVOTHYROXINE
     Dosage: 112 UG, 1X/DAY
     Route: 048
  7. CALCIUM CARBONATE. [Suspect]
     Active Substance: CALCIUM CARBONATE
     Indication: GASTROINTESTINAL DISORDER
     Dosage: UNK
     Route: 065
  8. EPOETIN ALFA [Suspect]
     Active Substance: ERYTHROPOIETIN
     Dosage: UNK
     Route: 065
  9. DEXAMETHASONE. [Suspect]
     Active Substance: DEXAMETHASONE
     Dosage: 2 MG, UNK
     Route: 065
  10. REVLIMID [Suspect]
     Active Substance: LENALIDOMIDE
     Dosage: 10 MG, CYCLIC (21 EVERY 28 DAYS)
     Route: 048
  11. VITAMIN C [Suspect]
     Active Substance: ASCORBIC ACID
     Dosage: 600 MG, ONCE DAILY
     Route: 065
  12. SEA WATER [Suspect]
     Active Substance: SEA WATER
     Dosage: UNK UNK, 3X/DAY
     Route: 047
  13. EPREX [Suspect]
     Active Substance: ERYTHROPOIETIN
     Dosage: UNK
     Route: 042
  14. ACETYLSALICYLIC ACID/ASCORBIC ACID [Suspect]
     Active Substance: ACETAMINOPHEN\ASCORBIC ACID
     Dosage: 81 MG, 1X/DAY
     Route: 065
  15. CLOTRIMAZOLE W/HYDROCORTISONE [Suspect]
     Active Substance: CLOTRIMAZOLE\HYDROCORTISONE
     Indication: SCROTAL SWELLING
     Dosage: UNK UNK, WEEKLY
     Route: 065
  16. DEXAMETHASONE. [Suspect]
     Active Substance: DEXAMETHASONE
     Dosage: 2 DF, UNK
     Route: 048
  17. LODALIS [Suspect]
     Active Substance: COLESEVELAM HYDROCHLORIDE
     Dosage: 625 MG, ONCE DAILY
     Route: 065
  18. FLUORINE W/XYLITOL [Suspect]
     Active Substance: FLUORINE\XYLITOL
     Dosage: UNK, DAILY
     Route: 048
  19. ASCORBIC ACID. [Suspect]
     Active Substance: ASCORBIC ACID
     Dosage: 600 MG, 1X/DAY
  20. LOPERAMIDE HYDROCHLORIDE W/SIMETICONE [Suspect]
     Active Substance: DIMETHICONE\LOPERAMIDE HYDROCHLORIDE
     Indication: DIARRHOEA
     Dosage: 1 DF, DAILY
     Route: 048
  21. DEXAMETHASONE. [Suspect]
     Active Substance: DEXAMETHASONE
     Dosage: 8 MG, ONCE DAILY
     Route: 048
  22. GLYCERINE [Suspect]
     Active Substance: GLYCERIN
     Dosage: UNK
     Route: 048
  23. ESTER C [ASCORBIC ACID] [Suspect]
     Active Substance: ASCORBIC ACID
     Dosage: 600 MG, 1X/DAY
     Route: 065
  24. PLANTAGO AFRA [Suspect]
     Active Substance: HERBALS
     Dosage: UNK UNK, ALTERNATE DAY (1 EVERY 2 DAY)
  25. PANTOPRAZOLE [Suspect]
     Active Substance: PANTOPRAZOLE
     Dosage: 40 MG, 1X/DAY
     Route: 048
  26. VITAMIN D3 [Suspect]
     Active Substance: CHOLECALCIFEROL
     Dosage: 1000 IU, ONCE DAILY
     Route: 065
  27. SIMETHICONE (DIMETHICONE) [Suspect]
     Active Substance: DIMETHICONE
     Indication: DIARRHOEA
     Dosage: 120 MG, 3X/DAY
     Route: 065
  28. FLUDROCORTISONE [Suspect]
     Active Substance: FLUDROCORTISONE
     Dosage: 0.1 MG, 1X/DAY
     Route: 065
  29. PSYLLIUM [PLANTAGO AFRA] [Suspect]
     Active Substance: PLANTAGO AFRA SEED
     Dosage: 1 DF, ALTERNATE DAY
     Route: 065
  30. ELTROXIN [Suspect]
     Active Substance: LEVOTHYROXINE
     Dosage: 112 UG, ONCE DAILY
     Route: 048
  31. BIOTENE [FLUORINE;XYLITOL] [Suspect]
     Active Substance: SODIUM FLUORIDE\SODIUM MONOFLUOROPHOSPHATE
     Dosage: UNK UNK, 2X/DAY
     Route: 048
  32. CYANOCOBALAMIN. [Suspect]
     Active Substance: CYANOCOBALAMIN
     Dosage: 1000 UG, ONCE DAILY
     Route: 048
  33. DEXAMETHASONE. [Suspect]
     Active Substance: DEXAMETHASONE
     Dosage: 4 MG, 2X/DAY
     Route: 048
  34. VITAMIN B12 [Suspect]
     Active Substance: CYANOCOBALAMIN
     Dosage: 1000 UG, ONCE DAILY
     Route: 048
  35. HYALURONATE NA [Suspect]
     Active Substance: HYALURONATE SODIUM
     Dosage: UNK UNK, 3X/DAY
     Route: 047
  36. HYDROCORTISONE ACETATE. [Suspect]
     Active Substance: HYDROCORTISONE ACETATE
     Indication: SCROTAL SWELLING
     Dosage: UNK UNK, 2X/WEEK
     Route: 065
  37. REVLIMID [Suspect]
     Active Substance: LENALIDOMIDE
     Indication: PLASMA CELL MYELOMA
     Dosage: 10 MG, ONCE DAILY
     Route: 048
  38. CALCIUM ASCORBATE [Suspect]
     Active Substance: CALCIUM ASCORBATE
     Dosage: 600 MG, ONCE DAILY
     Route: 065
  39. TUMS [CALCIUM CARBONATE;MAGNESIUM CARBONATE;MAGNESIUM TRISILICATE] [Suspect]
     Active Substance: CALCIUM CARBONATE\MAGNESIUM CARBONATE\MAGNESIUM TRISILICATE
     Indication: GASTROINTESTINAL DISORDER
     Dosage: UNK
     Route: 065
  40. COLESEVELAM HCL [Suspect]
     Active Substance: COLESEVELAM HYDROCHLORIDE
     Dosage: 625 MG, 1X/DAY
     Route: 065
  41. PSYLLIUM HUSK [PLANTAGO OVATA HUSK] [Suspect]
     Active Substance: HERBALS\PLANTAGO OVATA SEED COAT
     Dosage: 1 DF, ALTERNATE DAY
     Route: 065
  42. CALCIUM ASCORBATE/SODIUM ASCORBATE/ZINC CITRATE [Suspect]
     Active Substance: CALCIUM ASCORBATE\SODIUM ASCORBATE\ZINC CITRATE
     Dosage: 600 MG, 1X/DAY
     Route: 065

REACTIONS (4)
  - Confusional state [Not Recovered/Not Resolved]
  - Disorientation [Not Recovered/Not Resolved]
  - Cerebrovascular accident [Not Recovered/Not Resolved]
  - Speech disorder [Not Recovered/Not Resolved]
